FAERS Safety Report 7796415 (Version 3)
Quarter: 2015Q1

REPORT INFORMATION
  Report Type: Report from Study
  Country: FR (occurrence: FR)
  Receive Date: 20110202
  Receipt Date: 20150220
  Transmission Date: 20150721
  Serious: Yes (Death, Life-Threatening)
  Sender: FDA-Public Use
  Company Number: FR-PFIZER INC-FR-WYE-G06423810

PATIENT
  Age: 64 Year
  Sex: Male
  Weight: 77 kg

DRUGS (11)
  1. DAUNORUBICIN [Suspect]
     Active Substance: DAUNORUBICIN
     Dosage: 115 MG, DAILY
     Route: 042
     Dates: start: 20100629, end: 20100701
  2. FORTUM [Concomitant]
     Active Substance: CEFTAZIDIME
     Dosage: 2 G, DAILY
     Route: 042
     Dates: start: 20100705
  3. GEMTUZUMAB OZOGAMICIN [Suspect]
     Active Substance: GEMTUZUMAB OZOGAMICIN
     Indication: ACUTE MYELOID LEUKAEMIA
     Dosage: 5 MG, DAILY
     Route: 042
     Dates: start: 20100629, end: 20100705
  4. ARACYTINE [Suspect]
     Active Substance: CYTARABINE
     Indication: ACUTE MYELOID LEUKAEMIA
     Dosage: 384 MG, DAILY
     Route: 042
     Dates: start: 20100629, end: 20100707
  5. HALDOL [Concomitant]
     Active Substance: HALOPERIDOL
     Dosage: 2.5 MG, DAILY
     Route: 048
     Dates: start: 20100705
  6. NOXAFIL [Concomitant]
     Active Substance: POSACONAZOLE
     Dosage: 200 MG, 3X/DAY
     Route: 048
     Dates: start: 20100705, end: 20100713
  7. TIORFAN [Concomitant]
     Active Substance: RACECADOTRIL
     Dosage: 100 MG, 3X/DAY
     Route: 048
     Dates: start: 20100705
  8. METFORMIN [Concomitant]
     Active Substance: METFORMIN HYDROCHLORIDE
     Dosage: 500 MG, 2X/DAY
     Route: 048
     Dates: start: 20100705
  9. LEXOMIL [Concomitant]
     Active Substance: BROMAZEPAM
     Dosage: 1 DF, DAILY
     Route: 048
     Dates: start: 20100705
  10. PERFALGAN [Concomitant]
     Active Substance: ACETAMINOPHEN
     Dosage: 1 G, 3X/DAY
     Route: 042
     Dates: start: 20100708
  11. VANCOMYCIN [Concomitant]
     Active Substance: VANCOMYCIN
     Dosage: 3 G, DAILY
     Route: 042
     Dates: start: 20100709, end: 20100713

REACTIONS (2)
  - Venoocclusive liver disease [Fatal]
  - Hepatotoxicity [Fatal]

NARRATIVE: CASE EVENT DATE: 20100712
